FAERS Safety Report 25713472 (Version 1)
Quarter: 2025Q3

REPORT INFORMATION
  Report Type: Spontaneous
  Country: AU (occurrence: AU)
  Receive Date: 20250822
  Receipt Date: 20250822
  Transmission Date: 20251021
  Serious: Yes (Other)
  Sender: TEVA
  Company Number: AU-TEVA-VS-3362914

PATIENT
  Age: 38 Year
  Sex: Female

DRUGS (2)
  1. AJOVY [Suspect]
     Active Substance: FREMANEZUMAB-VFRM
     Indication: Product used for unknown indication
     Dosage: LAST DOSE ADMINISTRATION DATE: 2025-02-27
     Route: 065
     Dates: start: 20250227
  2. DEXTROAMPHETAMINE SULFATE [Suspect]
     Active Substance: DEXTROAMPHETAMINE SULFATE
     Indication: Product used for unknown indication
     Route: 065
     Dates: start: 20250211, end: 2025

REACTIONS (7)
  - Chest discomfort [Unknown]
  - Heart rate increased [Unknown]
  - Presyncope [Recovered/Resolved]
  - Hypertension [Unknown]
  - Dyspnoea [Recovered/Resolved]
  - Fatigue [Recovered/Resolved]
  - Dizziness [Recovered/Resolved]

NARRATIVE: CASE EVENT DATE: 20250211
